FAERS Safety Report 18481386 (Version 1)
Quarter: 2020Q4

REPORT INFORMATION
  Report Type: Spontaneous
  Country: NZ (occurrence: NZ)
  Receive Date: 20201109
  Receipt Date: 20201109
  Transmission Date: 20210114
  Serious: Yes (Hospitalization)
  Sender: FDA-Public Use
  Company Number: NZ-MYLANLABS-2020M1092927

PATIENT
  Age: 74 Year
  Sex: Female

DRUGS (15)
  1. CLOZARIL [Suspect]
     Active Substance: CLOZAPINE
     Indication: SCHIZOPHRENIA
     Dosage: 3 TABLETS ONCE DAILY AT NIGHT
     Route: 048
     Dates: start: 20150410
  2. DIAZEPAM ARROW [Concomitant]
     Active Substance: DIAZEPAM
     Dosage: 1 TABLET ONCE DAILY AT NIGHT
  3. PHARMACARE PARACETAMOL [Concomitant]
     Indication: PAIN
     Dosage: 2 TABLETS 4 TIMES DAILY
  4. ENLAFAX [Suspect]
     Active Substance: VENLAFAXINE HYDROCHLORIDE
     Indication: PRODUCT USED FOR UNKNOWN INDICATION
     Dosage: 1 CAPSULE SWALLOWED WHOLE ONCE DAILY
     Route: 048
  5. UNIVENT [Concomitant]
     Indication: SALIVARY HYPERSECRETION
     Dosage: 2 SPRAYS 3 TIMES DAILY
     Route: 060
  6. MOLAXOLE [Concomitant]
     Active Substance: POLYETHYLENE GLYCOL 3350\POTASSIUM CHLORIDE\SODIUM BICARBONATE\SODIUM CHLORIDE
     Dosage: 1 SACHET MORNING, HALF SACHET NIGHT
  7. EPILIM [Concomitant]
     Active Substance: VALPROATE SODIUM
     Dosage: 2 TABLETS ONCE DAILY AT NIGHT
  8. PHARMACARE PARACETAMOL [Concomitant]
     Indication: PYREXIA
  9. SULPRIX [Concomitant]
     Dosage: 1 TABLET ONCE DAILY AT NIGHT
  10. VITAMIN D3 [Concomitant]
     Active Substance: CHOLECALCIFEROL
     Dosage: 1 CAPSULE ONCE A MONTH
  11. NAUSICALM                          /00014902/ [Concomitant]
     Indication: NAUSEA
     Dosage: HALF TABLET UP TWICE DAILY, PRN
  12. NAUSICALM                          /00014902/ [Concomitant]
     Indication: VOMITING
  13. PAXAM                              /00285201/ [Concomitant]
     Active Substance: CLONAZEPAM
     Dosage: HALF TABLET AT NIGHT
  14. FLEET ENEMA [Concomitant]
     Active Substance: SODIUM PHOSPHATE, DIBASIC\SODIUM PHOSPHATE, MONOBASIC
     Dosage: UNK
  15. SIMVASTATIN. [Concomitant]
     Active Substance: SIMVASTATIN
     Indication: MYOCARDIAL ISCHAEMIA
     Dosage: 1 TABLET ONCE DAILY WITH FOOD AT NIGHT

REACTIONS (6)
  - Drug level above therapeutic [Unknown]
  - Duodenal perforation [Unknown]
  - Hypophosphataemia [Unknown]
  - Oral candidiasis [Unknown]
  - Ileus [Unknown]
  - Hypokalaemia [Unknown]

NARRATIVE: CASE EVENT DATE: 202008
